FAERS Safety Report 20721465 (Version 1)
Quarter: 2022Q2

REPORT INFORMATION
  Report Type: Spontaneous
  Country: US (occurrence: None)
  Receive Date: 20220417
  Receipt Date: 20220417
  Transmission Date: 20220721
  Serious: Yes (Other)
  Sender: FDA-Public Use
  Company Number: None

PATIENT
  Age: 58 Year
  Sex: Female
  Weight: 63 kg

DRUGS (1)
  1. XARELTO [Suspect]
     Active Substance: RIVAROXABAN
     Indication: Coagulopathy
     Dosage: OTHER QUANTITY : 1 TABLET(S);?FREQUENCY : DAILY;?
     Route: 048
     Dates: start: 20211221, end: 20220405

REACTIONS (9)
  - Anxiety [None]
  - Chest discomfort [None]
  - Anxiety [None]
  - Panic reaction [None]
  - Dysphemia [None]
  - Anhedonia [None]
  - Fatigue [None]
  - Gastrointestinal disorder [None]
  - Muscular weakness [None]

NARRATIVE: CASE EVENT DATE: 20220103
